FAERS Safety Report 9355447 (Version 1)
Quarter: 2013Q2

REPORT INFORMATION
  Report Type: Spontaneous
  Country: US (occurrence: US)
  Receive Date: 20130619
  Receipt Date: 20130619
  Transmission Date: 20140414
  Serious: No
  Sender: FDA-Public Use
  Company Number: US-VERTEX PHARMACEUTICALS INC-2013-007159

PATIENT
  Age: 55 Year
  Sex: Female
  Weight: 82 kg

DRUGS (3)
  1. INCIVEK [Suspect]
     Indication: HEPATITIS C
     Dosage: 750 MG, TID
     Route: 048
     Dates: start: 201303, end: 20130612
  2. RIBAVIRIN [Suspect]
     Indication: HEPATITIS C
     Dosage: 1 IN AM, 2 IN PM
     Dates: start: 201303
  3. PEGASYS [Suspect]
     Indication: HEPATITIS C
     Dosage: WEEKLY
     Route: 058
     Dates: start: 201303

REACTIONS (2)
  - Rash [Recovered/Resolved]
  - Pruritus [Not Recovered/Not Resolved]
